FAERS Safety Report 5617265-0 (Version None)
Quarter: 2008Q1

REPORT INFORMATION
  Report Type: 
  Country: None (occurrence: None)
  Receive Date: 20080207
  Receipt Date: 20070619
  Transmission Date: 20080703
  Serious: No
  Sender: FDA-Public Use
  Company Number: A0658225A

PATIENT
  Age: 63 Year
  Sex: Male

DRUGS (2)
  1. PAXIL [Suspect]
     Indication: ANXIETY
     Dosage: 40MG SEE DOSAGE TEXT
     Route: 048
     Dates: start: 20050101, end: 20070618
  2. NO CONCURRENT MEDICATION [Concomitant]

REACTIONS (3)
  - ANXIETY [None]
  - BACK PAIN [None]
  - HYPERGLYCAEMIA [None]
